FAERS Safety Report 9914256 (Version 1)
Quarter: 2014Q1

REPORT INFORMATION
  Report Type: Spontaneous
  Country: US (occurrence: None)
  Receive Date: 20140218
  Receipt Date: 20140218
  Transmission Date: 20141002
  Serious: Yes (Other)
  Sender: FDA-Public Use
  Company Number: AXC-2014-000089

PATIENT
  Age: 68 Year
  Sex: Female

DRUGS (2)
  1. PROPRANOLOL HYDROCHLORIDE [Suspect]
     Indication: ESSENTIAL TREMOR
     Route: 048
     Dates: start: 2013, end: 201311
  2. AMLODIPINE ( AMLODIPINE) UNKNOWN UNK TO UNK [Concomitant]

REACTIONS (3)
  - Reaction to drug excipients [None]
  - Diarrhoea [None]
  - Weight decreased [None]
